FAERS Safety Report 5985907-6 (Version None)
Quarter: 2008Q4

REPORT INFORMATION
  Report Type: 
  Country: None (occurrence: None)
  Receive Date: 20081208
  Receipt Date: 20081208
  Transmission Date: 20090506
  Serious: Yes (Life-Threatening, Hospitalization, Disabling, Other)
  Sender: FDA-Public Use
  Company Number: None

PATIENT
  Age: 36 Year
  Sex: Female
  Weight: 47.6 kg

DRUGS (11)
  1. HEPA GAM B }312 1UNITS/5M CANGENE [Suspect]
     Indication: HEPATITIS B POSITIVE
     Dosage: 2,000 IUNITS ONCE IV DRIP
     Route: 041
     Dates: start: 20081125, end: 20081125
  2. METHYLPREDNISOLONE 16MG TAB [Concomitant]
  3. TACROLIMUS AND MYCOPHENOLATE [Concomitant]
  4. URSODIOL [Concomitant]
  5. BACTRIM DS [Concomitant]
  6. FLUCONAZOLE [Concomitant]
  7. GANCICLOVIR [Concomitant]
  8. MULTI-VITAMIN [Concomitant]
  9. MORPHINE [Concomitant]
  10. REGULAR INSULIN [Concomitant]
  11. PANTOPRAZOLE SODIUM [Concomitant]

REACTIONS (4)
  - ANAPHYLACTOID REACTION [None]
  - CONFUSIONAL STATE [None]
  - DIZZINESS [None]
  - SINUS TACHYCARDIA [None]
